FAERS Safety Report 5585289-8 (Version None)
Quarter: 2008Q1

REPORT INFORMATION
  Report Type: 
  Country: None (occurrence: None)
  Receive Date: 20080104
  Receipt Date: 20080104
  Transmission Date: 20080703
  Serious: No
  Sender: FDA-Public Use
  Company Number: None

PATIENT
  Sex: Female
  Weight: 86 kg

DRUGS (2)
  1. CARBOPLATIN [Suspect]
     Dosage: 414 MG
  2. TAXOL [Suspect]
     Dosage: 327 MG

REACTIONS (1)
  - PULMONARY EMBOLISM [None]
